FAERS Safety Report 6818191-1 (Version None)
Quarter: 2010Q3

REPORT INFORMATION
  Report Type: 
  Country: None (occurrence: None)
  Receive Date: 20100706
  Receipt Date: 20070628
  Transmission Date: 20110219
  Serious: No
  Sender: FDA-Public Use
  Company Number: US-PFIZER INC-2007034793

PATIENT
  Sex: Female
  Weight: 105 kg

DRUGS (1)
  1. AZITHROMYCIN [Suspect]
     Indication: SINUSITIS
     Dates: start: 20070425, end: 20070427

REACTIONS (7)
  - ABDOMINAL PAIN UPPER [None]
  - ABDOMINAL TENDERNESS [None]
  - AGEUSIA [None]
  - FATIGUE [None]
  - LIP SWELLING [None]
  - NAUSEA [None]
  - PRURITUS [None]
